FAERS Safety Report 6512305-9 (Version None)
Quarter: 2009Q4

REPORT INFORMATION
  Report Type: 
  Country: None (occurrence: None)
  Receive Date: 20091222
  Receipt Date: 20090716
  Transmission Date: 20100525
  Serious: No
  Sender: FDA-Public Use
  Company Number: US-ASTRAZENECA-2009UW20141

PATIENT
  Age: 65 Year
  Sex: Male
  Weight: 78 kg

DRUGS (6)
  1. CRESTOR [Suspect]
     Route: 048
     Dates: end: 20090501
  2. NIASPAN [Suspect]
     Indication: HIGH DENSITY LIPOPROTEIN DECREASED
     Route: 048
     Dates: start: 20090201
  3. BETAPACE [Suspect]
     Dates: end: 20090501
  4. PLAVIX [Concomitant]
  5. ATENOLOL [Concomitant]
  6. ACETYLSALICYLIC ACID [Concomitant]

REACTIONS (1)
  - PAIN [None]
